FAERS Safety Report 10218835 (Version 1)
Quarter: 2014Q2

REPORT INFORMATION
  Report Type: Spontaneous
  Country: US (occurrence: US)
  Receive Date: 20140605
  Receipt Date: 20140605
  Transmission Date: 20141212
  Serious: No
  Sender: FDA-Public Use
  Company Number: US-BAYER-2014-083878

PATIENT
  Age: 88 Year
  Sex: Female
  Weight: 78.01 kg

DRUGS (4)
  1. ALEVE CAPLET [Suspect]
     Indication: BACK PAIN
     Dosage: 2 DF, PRN
     Route: 048
     Dates: start: 2013
  2. CENTRUM SILVER [Concomitant]
  3. FISH OIL [Concomitant]
  4. VITAMIN D3 [Concomitant]

REACTIONS (1)
  - Drug ineffective [None]
